FAERS Safety Report 10283956 (Version 1)
Quarter: 2014Q3

REPORT INFORMATION
  Report Type: Spontaneous
  Country: FR (occurrence: FR)
  Receive Date: 20140708
  Receipt Date: 20140708
  Transmission Date: 20150326
  Serious: Yes (Hospitalization)
  Sender: FDA-Public Use
  Company Number: FR-TEVA-492570ISR

PATIENT
  Age: 79 Year
  Sex: Female

DRUGS (12)
  1. KARDEGIC 160MG [Concomitant]
     Indication: MYOCARDIAL ISCHAEMIA
     Dosage: 1 DOSAGE FORMS DAILY; STARTED BEFORE JULY 2008
     Route: 048
  2. GLIMEPIRIDE TEVA 2MG [Suspect]
     Active Substance: GLIMEPIRIDE
     Indication: TYPE 2 DIABETES MELLITUS
     Dosage: 1 DOSAGE FORMS DAILY; STARTED BEFORE JULY 2008
     Route: 048
     Dates: end: 20090524
  3. CACIT VITAMINE D3 1000MG/880IU [Concomitant]
     Indication: CALCIUM DEFICIENCY
     Dosage: 1 DOSAGE FORMS DAILY; STARTED BEFORE JULY 2008
     Route: 048
  4. DI-ANTALVIC [Suspect]
     Active Substance: ACETAMINOPHEN\PROPOXYPHENE HYDROCHLORIDE
     Indication: PAIN
     Dosage: 4 DOSAGE FORMS DAILY; STARTED BETWEEN SEP-2008 AND MAY-2009
     Route: 048
     Dates: end: 20090524
  5. ESIDREX [Suspect]
     Active Substance: HYDROCHLOROTHIAZIDE
     Indication: HYPERTENSION
     Dosage: 1 DOSAGE FORMS DAILY;
     Route: 048
     Dates: start: 200808, end: 20090526
  6. ATENOLOL TEVA 100MG [Concomitant]
     Indication: HYPERTENSION
     Dosage: 1 DOSAGE FORMS DAILY; STARTED BEFORE JULY 2008
     Route: 048
  7. BACLOFENE WINTHROP 10MG [Suspect]
     Active Substance: BACLOFEN
     Indication: HEMIPLEGIA
     Dosage: 1 DOSAGE FORMS DAILY; STARTED BETWEEN SEP-2008 AND MAY-2009
     Route: 048
     Dates: end: 20090524
  8. TRINIPATCH 10MG/24HOURS [Concomitant]
     Indication: CARDIOVASCULAR EVENT PROPHYLAXIS
     Dosage: 1 DOSAGE FORMS DAILY; STARTED BEFORE JULY 2008
     Route: 062
  9. GLUCOR [Suspect]
     Active Substance: ACARBOSE
     Indication: TYPE 2 DIABETES MELLITUS
     Dosage: 3 DOSAGE FORMS DAILY; STARTED BEFORE JULY 2008
     Route: 048
     Dates: end: 20090524
  10. OMEPRAZOLE. [Concomitant]
     Active Substance: OMEPRAZOLE
     Indication: GASTROOESOPHAGEAL REFLUX DISEASE
     Dosage: 10 MILLIGRAM DAILY;
     Route: 048
     Dates: start: 200808
  11. TAHOR [Suspect]
     Active Substance: ATORVASTATIN CALCIUM
     Indication: HYPERCHOLESTEROLAEMIA
     Dosage: 1 DOSAGE FORMS DAILY;
     Route: 048
     Dates: start: 200808, end: 20090524
  12. AMLODIPINE EG 10MG [Concomitant]
     Indication: HYPERTENSION
     Dosage: 1 DOSAGE FORMS DAILY; STARTED BEFORE JULY 2008
     Route: 048

REACTIONS (3)
  - Hepatic encephalopathy [Recovered/Resolved]
  - Hyperammonaemia [Recovered/Resolved]
  - Cholestasis [Recovered/Resolved]

NARRATIVE: CASE EVENT DATE: 20090520
